FAERS Safety Report 21309223 (Version 1)
Quarter: 2022Q3

REPORT INFORMATION
  Report Type: Spontaneous
  Country: CN (occurrence: CN)
  Receive Date: 20220908
  Receipt Date: 20220908
  Transmission Date: 20221027
  Serious: Yes (Other)
  Sender: FDA-Public Use
  Company Number: CN-009507513-2209CHN001364

PATIENT
  Age: 69 Year
  Sex: Male
  Weight: 73 kg

DRUGS (2)
  1. CILASTATIN SODIUM\IMIPENEM [Suspect]
     Active Substance: CILASTATIN SODIUM\IMIPENEM
     Indication: Anti-infective therapy
     Dosage: 1 G, Q12H
     Route: 041
     Dates: start: 20220813, end: 20220822
  2. SODIUM CHLORIDE [Suspect]
     Active Substance: SODIUM CHLORIDE
     Dosage: 100 ML, Q12H
     Route: 041
     Dates: start: 20220813

REACTIONS (4)
  - Septic shock [Unknown]
  - Fungal infection [Unknown]
  - Faeces discoloured [Recovered/Resolved]
  - Diarrhoea [Recovered/Resolved]

NARRATIVE: CASE EVENT DATE: 20220801
